FAERS Safety Report 17891946 (Version 2)
Quarter: 2020Q2

REPORT INFORMATION
  Report Type: Report from Study
  Country: US (occurrence: US)
  Receive Date: 20200612
  Receipt Date: 20200629
  Transmission Date: 20200714
  Serious: Yes (Hospitalization, Disabling)
  Sender: FDA-Public Use
  Company Number: US-JNJFOC-20200608626

PATIENT
  Age: 70 Year
  Sex: Male

DRUGS (1)
  1. USTEKINUMAB [Suspect]
     Active Substance: USTEKINUMAB
     Indication: COLITIS ULCERATIVE
     Route: 058
     Dates: start: 20200218

REACTIONS (3)
  - Gait inability [Not Recovered/Not Resolved]
  - Pollakiuria [Not Recovered/Not Resolved]
  - CSF test abnormal [Not Recovered/Not Resolved]

NARRATIVE: CASE EVENT DATE: 20200528
